FAERS Safety Report 15267605 (Version 1)
Quarter: 2018Q3

REPORT INFORMATION
  Report Type: Spontaneous
  Country: US (occurrence: US)
  Receive Date: 20180724
  Receipt Date: 20180724
  Transmission Date: 20181010
  Serious: Yes (Hospitalization)
  Sender: FDA-Public Use
  Company Number: None

PATIENT
  Age: 47 Year
  Sex: Male
  Weight: 72.6 kg

DRUGS (1)
  1. IOPAMIDOL 61% 100 ML VIAL 61% [Suspect]
     Active Substance: IOPAMIDOL
     Indication: OESOPHAGEAL CARCINOMA
     Route: 042
     Dates: start: 20180618

REACTIONS (2)
  - Urticaria [None]
  - Drug hypersensitivity [None]

NARRATIVE: CASE EVENT DATE: 20180718
